FAERS Safety Report 6136482-7 (Version None)
Quarter: 2009Q1

REPORT INFORMATION
  Report Type: 
  Country: None (occurrence: None)
  Receive Date: 20090217
  Receipt Date: 20080616
  Transmission Date: 20090719
  Serious: No
  Sender: FDA-Public Use
  Company Number: AEUSA200800142

PATIENT
  Age: 58 Year
  Sex: Male
  Weight: 71.6683 kg

DRUGS (17)
  1. GAMUNEX [Suspect]
     Indication: IMMUNOGLOBULINS DECREASED
     Dosage: 20 GM; IX; IV
     Route: 042
     Dates: start: 20060101, end: 20080601
  2. PROLASTIN - TALECRIS [Suspect]
     Indication: ALPHA-1 ANTI-TRYPSIN DEFICIENCY
     Dosage: 6486 MG; IX; IV
     Route: 042
     Dates: start: 19930101, end: 20080612
  3. PRAVASTATIN [Concomitant]
  4. ACYCLOVIR [Concomitant]
  5. AZATHIOPRINE [Concomitant]
  6. ESOMEPRAZOLE MAGNESIUM [Concomitant]
  7. BACTRIM DS [Concomitant]
  8. ALENDRONATE SODIUM [Concomitant]
  9. PROGRAF [Concomitant]
  10. PREDNISONE [Concomitant]
  11. FLUCONAZOLE [Concomitant]
  12. PLAVIX [Concomitant]
  13. LISINOPRIL [Concomitant]
  14. COREG [Concomitant]
  15. ASPIRIN [Concomitant]
  16. IRON [Concomitant]
  17. CALTRATE-D [Concomitant]

REACTIONS (4)
  - DIZZINESS [None]
  - FEELING OF BODY TEMPERATURE CHANGE [None]
  - HYPERHIDROSIS [None]
  - MUSCULOSKELETAL STIFFNESS [None]
